FAERS Safety Report 9496398 (Version 1)
Quarter: 2013Q3

REPORT INFORMATION
  Report Type: Spontaneous
  Country: BE (occurrence: BE)
  Receive Date: 20130904
  Receipt Date: 20130904
  Transmission Date: 20140515
  Serious: Yes (Death, Hospitalization, Other)
  Sender: FDA-Public Use
  Company Number: BE-JNJFOC-20130817512

PATIENT
  Age: 59 Year
  Sex: Female
  Weight: 80 kg

DRUGS (15)
  1. CONTRAMAL [Suspect]
     Indication: BACK PAIN
     Route: 030
     Dates: start: 20111028
  2. BOSUTINIB [Suspect]
     Indication: CHRONIC MYELOID LEUKAEMIA
     Route: 048
     Dates: start: 20081022
  3. ACETYL SALICYLIC ACID [Concomitant]
     Indication: CARDIOVASCULAR EVENT PROPHYLAXIS
     Route: 065
     Dates: start: 20120712
  4. PARACETAMOL [Concomitant]
     Indication: PRODUCT USED FOR UNKNOWN INDICATION
     Route: 065
     Dates: start: 20110725
  5. CLOTIAZEPAM [Concomitant]
     Indication: PRODUCT USED FOR UNKNOWN INDICATION
     Route: 065
     Dates: start: 20101006
  6. ESCITALOPRAM [Concomitant]
     Indication: PRODUCT USED FOR UNKNOWN INDICATION
     Route: 065
     Dates: start: 20110727
  7. NOVOMIX [Concomitant]
     Indication: DIABETES MELLITUS
     Route: 065
     Dates: start: 20101013
  8. LEVOTHYROXINE [Concomitant]
     Indication: HYPOTHYROIDISM
     Route: 065
     Dates: start: 20090213
  9. AMLODIPINE [Concomitant]
     Indication: HYPERTENSION
     Route: 048
     Dates: start: 20090208
  10. MACROGOL [Concomitant]
     Indication: PROPHYLAXIS AGAINST PSYCHOMOTOR AGITATION
     Route: 048
     Dates: start: 20110529
  11. BISOPROLOL [Concomitant]
     Indication: HYPOTENSION
     Route: 065
     Dates: start: 201203
  12. PREGABALIN [Concomitant]
     Indication: PARAESTHESIA
     Route: 065
     Dates: start: 20110811
  13. PANTOPRAZOLE [Concomitant]
     Indication: PRODUCT USED FOR UNKNOWN INDICATION
     Route: 065
     Dates: start: 20110803
  14. CLOPIDOGREL [Concomitant]
     Indication: PRODUCT USED FOR UNKNOWN INDICATION
     Route: 065
     Dates: start: 20110803
  15. LORMETAZEPAM [Concomitant]
     Indication: PROPHYLAXIS
     Route: 065
     Dates: start: 20110727

REACTIONS (3)
  - Sudden death [Fatal]
  - Gastrointestinal infection [Recovered/Resolved]
  - Faecaloma [Recovered/Resolved]
